FAERS Safety Report 23767631 (Version 1)
Quarter: 2024Q2

REPORT INFORMATION
  Report Type: Report from Study
  Country: US (occurrence: US)
  Receive Date: 20240422
  Receipt Date: 20240422
  Transmission Date: 20240716
  Serious: Yes (Hospitalization, Other)
  Sender: FDA-Public Use
  Company Number: US-GILEAD-2024-0669911

PATIENT
  Sex: Male

DRUGS (2)
  1. AZTREONAM LYSINE [Suspect]
     Active Substance: AZTREONAM LYSINE
     Indication: Tracheostomy
     Dosage: 1 ML VIAL VIA ALTERA NEBULIZER THREE TIMES DAILY FOR 28 DAYS. ALTERNATE 4 WEEKS ON, 4 WEEKS OFF
     Route: 055
  2. AZTREONAM LYSINE [Suspect]
     Active Substance: AZTREONAM LYSINE
     Indication: Bacterial infection

REACTIONS (2)
  - Pneumonia [Unknown]
  - Off label use [Unknown]
